FAERS Safety Report 8228903-0 (Version None)
Quarter: 2012Q1

REPORT INFORMATION
  Report Type: 
  Country: None (occurrence: None)
  Receive Date: 20120322
  Receipt Date: 20120313
  Transmission Date: 20120608
  Serious: Yes (Other)
  Sender: FDA-Public Use
  Company Number: US-JNJFOC-20120306706

PATIENT
  Sex: Female
  Weight: 110.22 kg

DRUGS (21)
  1. REMICADE [Suspect]
     Indication: RHEUMATOID ARTHRITIS
     Route: 042
     Dates: start: 20100101
  2. PAXIL [Concomitant]
     Indication: DEPRESSION
     Route: 048
  3. PLAVIX [Concomitant]
     Indication: CEREBROVASCULAR ACCIDENT
     Route: 048
     Dates: start: 20070101
  4. METOPROLOL SUCCINATE [Concomitant]
     Indication: HYPERTENSION
     Route: 048
  5. VITAMIN D [Concomitant]
     Indication: NUTRITIONAL SUPPORT
     Route: 048
  6. ASPIRIN [Concomitant]
     Indication: CARDIAC DISORDER
     Route: 048
  7. FENTANYL [Concomitant]
     Route: 065
  8. PAXIL [Concomitant]
     Indication: ANXIETY
     Route: 048
  9. PLAQUENIL [Concomitant]
     Indication: RHEUMATOID ARTHRITIS
     Dosage: AT NOON
     Route: 048
     Dates: start: 19920101
  10. POTASSIUM [Concomitant]
     Indication: NUTRITIONAL SUPPORT
     Route: 048
  11. DULCOLAX [Concomitant]
     Indication: ABNORMAL FAECES
     Route: 048
  12. METHOTREXATE [Concomitant]
     Indication: RHEUMATOID ARTHRITIS
     Dosage: 2.5 MG, 6 TABLETS EVERY MONDAY
     Route: 048
     Dates: start: 20020101
  13. VICODIN [Concomitant]
     Indication: PAIN
     Route: 048
  14. VESICARE [Concomitant]
     Indication: BLADDER DISORDER
     Route: 048
     Dates: start: 20100101
  15. CELEBREX [Concomitant]
     Indication: PAIN
     Route: 048
  16. FAMOTIDINE [Concomitant]
     Indication: GASTROOESOPHAGEAL REFLUX DISEASE
     Route: 048
     Dates: start: 20110101
  17. PREDNISONE TAB [Concomitant]
     Indication: RHEUMATOID ARTHRITIS
     Route: 048
  18. FOLBIC [Concomitant]
     Indication: NUTRITIONAL SUPPORT
     Dosage: 2 TABLETS AT NOON
     Route: 048
  19. CALCIUM CARBONATE [Concomitant]
     Indication: NUTRITIONAL SUPPORT
     Route: 048
  20. CRESTOR [Concomitant]
     Indication: BLOOD CHOLESTEROL INCREASED
     Route: 048
  21. FOSAMAX [Concomitant]
     Indication: OSTEOPOROSIS
     Route: 048

REACTIONS (8)
  - HEARING IMPAIRED [None]
  - WEIGHT DECREASED [None]
  - FALL [None]
  - BLOOD PRESSURE INADEQUATELY CONTROLLED [None]
  - BODY HEIGHT DECREASED [None]
  - ARTHRALGIA [None]
  - CHRONIC OBSTRUCTIVE PULMONARY DISEASE [None]
  - CELLULITIS [None]
